FAERS Safety Report 9634223 (Version 1)
Quarter: 2013Q4

REPORT INFORMATION
  Report Type: Spontaneous
  Country: US (occurrence: US)
  Receive Date: 20131021
  Receipt Date: 20131021
  Transmission Date: 20140711
  Serious: No
  Sender: FDA-Public Use
  Company Number: US-PURDUE-USA-2013-0100700

PATIENT
  Sex: 0

DRUGS (2)
  1. BUTRANS [Suspect]
     Indication: BACK PAIN
     Dosage: 5 MCG/HR, UNK
     Route: 062
  2. BUTRANS [Suspect]
     Indication: NECK PAIN

REACTIONS (2)
  - Joint swelling [Unknown]
  - Arthralgia [Unknown]
